FAERS Safety Report 9145101 (Version 2)
Quarter: 2013Q2

REPORT INFORMATION
  Report Type: Spontaneous
  Country: US (occurrence: US)
  Receive Date: 20130307
  Receipt Date: 20130621
  Transmission Date: 20140414
  Serious: No
  Sender: FDA-Public Use
  Company Number: US-BIOGENIDEC-2013BI019881

PATIENT
  Age: 42 Year
  Sex: Female

DRUGS (1)
  1. TYSABRI [Suspect]
     Indication: MULTIPLE SCLEROSIS
     Route: 042
     Dates: start: 20121120

REACTIONS (18)
  - Breast pain [Recovered/Resolved]
  - Paraesthesia [Recovered/Resolved]
  - Fall [Recovered/Resolved]
  - Influenza like illness [Recovered/Resolved]
  - Musculoskeletal stiffness [Recovered/Resolved]
  - Joint injury [Not Recovered/Not Resolved]
  - Dysgeusia [Recovered/Resolved]
  - Increased tendency to bruise [Recovered/Resolved]
  - Musculoskeletal disorder [Recovered/Resolved]
  - Muscle spasticity [Not Recovered/Not Resolved]
  - Memory impairment [Recovered/Resolved]
  - General symptom [Unknown]
  - Neck mass [Recovered/Resolved]
  - Feeling hot [Recovered/Resolved]
  - Amnesia [Not Recovered/Not Resolved]
  - Headache [Recovered/Resolved]
  - Dizziness [Recovered/Resolved]
  - Lethargy [Not Recovered/Not Resolved]
